FAERS Safety Report 19668464 (Version 1)
Quarter: 2021Q3

REPORT INFORMATION
  Report Type: Report from Study
  Country: ES (occurrence: ES)
  Receive Date: 20210806
  Receipt Date: 20210806
  Transmission Date: 20211014
  Serious: Yes (Other)
  Sender: FDA-Public Use
  Company Number: ES-MYLANLABS-2021M1049147

PATIENT
  Age: 6 Year
  Sex: Male

DRUGS (15)
  1. VALGANCICLOVIR. [Suspect]
     Active Substance: VALGANCICLOVIR
     Indication: CYTOMEGALOVIRUS INFECTION
     Dosage: UNK
     Route: 065
  2. VALGANCICLOVIR. [Suspect]
     Active Substance: VALGANCICLOVIR
     Indication: PNEUMONITIS
  3. GANCICLOVIR. [Suspect]
     Active Substance: GANCICLOVIR
     Indication: PNEUMONITIS
  4. CIDOFOVIR. [Suspect]
     Active Substance: CIDOFOVIR
     Indication: CYTOMEGALOVIRUS INFECTION
     Dosage: UNK
     Route: 065
  5. CIDOFOVIR. [Suspect]
     Active Substance: CIDOFOVIR
     Indication: ENCEPHALITIS CYTOMEGALOVIRUS
  6. FOSCARNET [Suspect]
     Active Substance: FOSCARNET
     Indication: CYTOMEGALOVIRUS INFECTION
     Dosage: UNK
     Route: 065
  7. VALGANCICLOVIR. [Suspect]
     Active Substance: VALGANCICLOVIR
     Indication: ENCEPHALITIS CYTOMEGALOVIRUS
  8. FOSCARNET [Suspect]
     Active Substance: FOSCARNET
     Indication: ENCEPHALITIS CYTOMEGALOVIRUS
  9. CIDOFOVIR. [Suspect]
     Active Substance: CIDOFOVIR
     Indication: PNEUMONITIS
  10. CYTOMEGALOVIRUS IMMUNE GLOBULIN [Suspect]
     Active Substance: HUMAN CYTOMEGALOVIRUS IMMUNE GLOBULIN
     Indication: CYTOMEGALOVIRUS INFECTION
     Dosage: UNK
     Route: 042
  11. GANCICLOVIR. [Suspect]
     Active Substance: GANCICLOVIR
     Indication: CYTOMEGALOVIRUS INFECTION
     Dosage: UNK
     Route: 065
  12. GANCICLOVIR. [Suspect]
     Active Substance: GANCICLOVIR
     Indication: ENCEPHALITIS CYTOMEGALOVIRUS
  13. FOSCARNET [Suspect]
     Active Substance: FOSCARNET
     Indication: PNEUMONITIS
  14. CYTOMEGALOVIRUS IMMUNE GLOBULIN [Suspect]
     Active Substance: HUMAN CYTOMEGALOVIRUS IMMUNE GLOBULIN
     Indication: ENCEPHALITIS CYTOMEGALOVIRUS
  15. CYTOMEGALOVIRUS IMMUNE GLOBULIN [Suspect]
     Active Substance: HUMAN CYTOMEGALOVIRUS IMMUNE GLOBULIN
     Indication: PNEUMONITIS

REACTIONS (1)
  - Drug ineffective [Unknown]
